FAERS Safety Report 9219132 (Version 1)
Quarter: 2013Q2

REPORT INFORMATION
  Report Type: Spontaneous
  Country: US (occurrence: None)
  Receive Date: 20130404
  Receipt Date: 20130404
  Transmission Date: 20140414
  Serious: Yes (Other)
  Sender: FDA-Public Use
  Company Number: SYM-2013-02451

PATIENT
  Sex: Male

DRUGS (5)
  1. FLUOROURACIL (FLUOROURACIL)(FLUOROURACIL) [Suspect]
     Indication: OESOPHAGEAL SQUAMOUS CELL CARCINOMA
  2. PACLITAXEL (PACLITAXEL) [Suspect]
     Indication: OESOPHAGEAL SQUAMOUS CELL CARCINOMA
  3. CARBOPLATIN (CARBOPLATIN) [Suspect]
     Indication: OESOPHAGEAL SQUAMOUS CELL CARCINOMA
  4. VANDETANIB [Suspect]
     Indication: OESOPHAGEAL SQUAMOUS CELL CARCINOMA
  5. THERAPEUTIC RADIOPHARMACEUTICALS (THERAPEUTIC RADIOPHARMACEUTICALS) [Suspect]
     Indication: OESOPHAGEAL SQUAMOUS CELL CARCINOMA

REACTIONS (1)
  - Anastomotic leak [None]
